FAERS Safety Report 9365294 (Version 1)
Quarter: 2013Q2

REPORT INFORMATION
  Report Type: Report from Study
  Country: MX (occurrence: MX)
  Receive Date: 20130625
  Receipt Date: 20130625
  Transmission Date: 20140414
  Serious: Yes (Death, Other)
  Sender: FDA-Public Use
  Company Number: MX-ROCHE-1239146

PATIENT
  Age: 75 Year
  Sex: Male
  Weight: 43 kg

DRUGS (2)
  1. XELODA [Suspect]
     Indication: GASTRIC CANCER
     Route: 048
     Dates: start: 20111127, end: 201210
  2. OXALIPLATIN [Suspect]
     Indication: GASTRIC CANCER
     Route: 042
     Dates: start: 201207, end: 201209

REACTIONS (9)
  - Respiratory failure [Fatal]
  - Disease progression [Not Recovered/Not Resolved]
  - Weight decreased [Not Recovered/Not Resolved]
  - Nausea [Recovered/Resolved]
  - Fatigue [Recovered/Resolved]
  - Rash macular [Recovered/Resolved]
  - Feeling cold [Not Recovered/Not Resolved]
  - Sputum increased [Not Recovered/Not Resolved]
  - Dry mouth [Not Recovered/Not Resolved]
